FAERS Safety Report 5202796-8 (Version None)
Quarter: 2006Q4

REPORT INFORMATION
  Report Type: 
  Country: None (occurrence: None)
  Receive Date: 20061018
  Receipt Date: 20060112
  Transmission Date: 20070319
  Serious: Yes (Hospitalization)
  Sender: FDA-Public Use
  Company Number: 06P-163-0322383-00

PATIENT
  Age: 36 Year
  Sex: Female
  Weight: 57.4707 kg

DRUGS (10)
  1. KALETRA [Suspect]
     Indication: DRUG USE FOR UNKNOWN INDICATION
     Dosage: 3 CAPSULE, 2 IN 1 D, PER ORAL
     Route: 048
     Dates: start: 20051212
  2. TRUVADA [Suspect]
     Indication: DRUG USE FOR UNKNOWN INDICATION
     Dosage: 1 TABLET, 1 IN 1 D, PER ORAL
     Route: 048
     Dates: start: 20051212
  3. AZITHROMYCIN [Concomitant]
  4. BACTRIM [Concomitant]
  5. ISONIAZID [Concomitant]
  6. ETHAMBUTOL HYDROCHLORIDE [Concomitant]
  7. FLUCONAZOLE [Concomitant]
  8. PYRAZINAMIDE [Concomitant]
  9. RIFABUTIN [Concomitant]
  10. TERBINAFINE HCL [Concomitant]

REACTIONS (5)
  - IMMUNE RECONSTITUTION SYNDROME [None]
  - MYALGIA [None]
  - MYCOBACTERIUM AVIUM COMPLEX INFECTION [None]
  - RASH [None]
  - TUBERCULOSIS [None]
